FAERS Safety Report 9066298 (Version 1)
Quarter: 2013Q1

REPORT INFORMATION
  Report Type: Report from Study
  Country: US (occurrence: US)
  Receive Date: 20130129
  Receipt Date: 20130129
  Transmission Date: 20140127
  Serious: No
  Sender: FDA-Public Use
  Company Number: US-ABBOTT-12P-163-0951852-00

PATIENT
  Age: 44 Year
  Sex: Female
  Weight: 56.75 kg

DRUGS (5)
  1. HUMIRA 40 MG/0.8 ML PEN [Suspect]
     Indication: CROHN^S DISEASE
     Route: 058
     Dates: start: 20120618
  2. ALEVE [Concomitant]
     Indication: PAIN
  3. ASPIRIN [Concomitant]
     Indication: COAGULOPATHY
  4. VITAMIN D [Concomitant]
     Indication: ANAEMIA
  5. MICROGESTIN [Concomitant]
     Indication: CONTRACEPTION

REACTIONS (3)
  - Weight increased [Not Recovered/Not Resolved]
  - Joint swelling [Not Recovered/Not Resolved]
  - Back pain [Not Recovered/Not Resolved]
